FAERS Safety Report 13671849 (Version 1)
Quarter: 2017Q2

REPORT INFORMATION
  Report Type: Spontaneous
  Country: FR (occurrence: FR)
  Receive Date: 20170620
  Receipt Date: 20170620
  Transmission Date: 20170830
  Serious: Yes (Hospitalization)
  Sender: FDA-Public Use
  Company Number: FR-009507513-1706FRA005567

PATIENT
  Age: 87 Year
  Sex: Female

DRUGS (11)
  1. TARDYFERON [Concomitant]
     Active Substance: FERROUS SULFATE
     Indication: ANAEMIA
     Dosage: LONG TERM
     Route: 048
  2. EUPRESSYL [Concomitant]
     Active Substance: URAPIDIL
     Indication: HYPERTENSION
     Dosage: 1 DF (60 MG), 1 PER DAY (LONG TERM)
     Route: 048
  3. NEBIVOLOL. [Concomitant]
     Active Substance: NEBIVOLOL
     Indication: MYOCARDIAL ISCHAEMIA
     Dosage: 2.5 MG, 1 PER DAY (LONG TERM)
     Route: 048
  4. LYSANXIA [Interacting]
     Active Substance: PRAZEPAM
     Indication: DEPRESSION
     Dosage: 1.5 DF,3 PER DAY
     Route: 048
     Dates: start: 20161207, end: 20161227
  5. NORSET [Suspect]
     Active Substance: MIRTAZAPINE
     Indication: DEPRESSION
     Dosage: 1 DF (15 MG), Q1 PER DAY EVENING
     Route: 048
     Dates: start: 20161207
  6. LERCAN [Concomitant]
     Active Substance: LERCANIDIPINE
     Indication: HYPERTENSION
     Dosage: 1 DF (10 MG), 1 PER DAY (LONG TERM)
     Route: 048
  7. COUMADIN [Concomitant]
     Active Substance: WARFARIN SODIUM
     Dosage: 2 MG (1.5 TABLET/ DAY)
     Route: 048
  8. KARDEGIC [Concomitant]
     Active Substance: ASPIRIN LYSINE
     Indication: MYOCARDIAL ISCHAEMIA
     Dosage: 1 DF (75 MG), 1 PER DAY (LONG TERM)
     Route: 048
  9. NOCTAMIDE [Interacting]
     Active Substance: LORMETAZEPAM
     Indication: DEPRESSION
     Dosage: 1 DF (2 MG), 1 PER DAY EVENING
     Route: 048
     Dates: start: 20161207
  10. FUROSEMIDE. [Concomitant]
     Active Substance: FUROSEMIDE
     Indication: MYOCARDIAL ISCHAEMIA
     Dosage: 20 MG, 1 PER DAY
     Route: 048
  11. COUMADIN [Concomitant]
     Active Substance: WARFARIN SODIUM
     Indication: ATRIAL FIBRILLATION
     Dosage: 3 MG, 1 PER DAY (LONG TERM)
     Route: 048

REACTIONS (1)
  - Acute respiratory failure [Recovered/Resolved with Sequelae]

NARRATIVE: CASE EVENT DATE: 20161227
